FAERS Safety Report 6062558-9 (Version None)
Quarter: 2009Q1

REPORT INFORMATION
  Report Type: 
  Country: None (occurrence: None)
  Receive Date: 20090202
  Receipt Date: 20090202
  Transmission Date: 20090719
  Serious: Yes (Other)
  Sender: FDA-Public Use
  Company Number: None

PATIENT
  Age: 58 Year
  Sex: Male
  Weight: 86.1834 kg

DRUGS (1)
  1. NIACIN [Suspect]
     Indication: BLOOD TRIGLYCERIDES INCREASED
     Dosage: 1 CAPLET ONE OR TWO A DAY PO
     Route: 048
     Dates: start: 20090128, end: 20090131

REACTIONS (4)
  - EAR DISCOMFORT [None]
  - ERYTHEMA [None]
  - FLUSHING [None]
  - PRODUCT QUALITY ISSUE [None]
